FAERS Safety Report 11143251 (Version 1)
Quarter: 2015Q2

REPORT INFORMATION
  Report Type: Spontaneous
  Country: US (occurrence: US)
  Receive Date: 20150526
  Receipt Date: 20150526
  Transmission Date: 20150821
  Serious: Yes (Other)
  Sender: FDA-Public Use
  Company Number: US-NOVEN PHARMACEUTICALS, INC.-US2015000167

PATIENT

DRUGS (6)
  1. MINIVELLE [Suspect]
     Active Substance: ESTRADIOL
     Indication: HORMONE REPLACEMENT THERAPY
     Dosage: 0.1 MG, UNK,
     Route: 062
     Dates: start: 201409
  2. MINIVELLE [Suspect]
     Active Substance: ESTRADIOL
     Indication: HOT FLUSH
  3. MINIVELLE [Suspect]
     Active Substance: ESTRADIOL
     Indication: NIGHT SWEATS
  4. PROGESTERONE. [Concomitant]
     Active Substance: PROGESTERONE
     Dosage: 200 MG, UNK
  5. MINIVELLE [Suspect]
     Active Substance: ESTRADIOL
     Indication: SLEEP DISORDER
  6. MINIVELLE [Suspect]
     Active Substance: ESTRADIOL
     Indication: FEELING ABNORMAL

REACTIONS (4)
  - Drug prescribing error [Unknown]
  - Wrong technique in drug usage process [Unknown]
  - Uterine leiomyoma [Not Recovered/Not Resolved]
  - Pain [Unknown]

NARRATIVE: CASE EVENT DATE: 201409
